FAERS Safety Report 8640733 (Version 2)
Quarter: 2012Q4

REPORT INFORMATION
  Report Type: Report from Study
  Country: GB (occurrence: GB)
  Receive Date: 20120628
  Receipt Date: 20120913
  Transmission Date: 20130627
  Serious: Yes (Hospitalization)
  Sender: FDA-Public Use
  Company Number: GB-CELGENEUS-167-21880-12053527

PATIENT
  Age: 48 Year
  Sex: Male
  Weight: 97.6 kg

DRUGS (20)
  1. REVLIMID [Suspect]
     Indication: CLL
     Dosage: 10 Milligram
     Route: 048
     Dates: start: 20120430, end: 20120524
  2. DEXAMETHASONE [Suspect]
     Indication: CLL
     Dosage: 40 Milligram
     Route: 048
     Dates: start: 20120416
  3. ALEMTUZUMAB [Suspect]
     Indication: CLL
     Route: 065
  4. IMMUNOGLOBULIN [Concomitant]
     Indication: DRUG USE FOR UNKNOWN INDICATION
     Route: 065
  5. PERINDOPRIL [Concomitant]
     Indication: HYPERTENSION
     Dosage: 2 Milligram
     Route: 048
  6. ATENOLOL [Concomitant]
     Indication: HYPERTENSION
     Dosage: 25 Milligram
     Route: 048
  7. SIMVASTATIN [Concomitant]
     Indication: HYPERCHOLESTEROLAEMIA
     Dosage: 80 Milligram
     Route: 048
  8. AMITRIPTYLINE [Concomitant]
     Indication: PAIN MANAGEMENT
     Dosage: 10 Milligram
     Route: 048
  9. LEVOTHYROXINE [Concomitant]
     Indication: HYPOTHYROIDISM
     Dosage: 100 Microgram
     Route: 048
  10. FLUCLOXACILLIN [Concomitant]
     Indication: CELLULITIS
     Dosage: 2000 Microgram
     Route: 048
     Dates: start: 20120514
  11. ALLOPURINOL [Concomitant]
     Indication: PROPHYLAXIS
     Dosage: 300 Milligram
     Route: 048
     Dates: start: 20120430
  12. COTRIMOXAZOLE [Concomitant]
     Indication: PNEUMOCYSTIS CARINII PROPHYLAXIS
     Dosage: 960 Milligram
     Route: 048
     Dates: start: 20120430
  13. ACICLOVIR [Concomitant]
     Indication: ANTIVIRAL PROPHYLAXIS
     Dosage: 800 Milligram
     Route: 048
     Dates: start: 20120430
  14. ITRACONAZOLE [Concomitant]
     Indication: ANTIFUNGAL PROPHYLAXIS
     Dosage: 400 Milligram
     Route: 048
     Dates: start: 20120430
  15. LANSOPRAZOLE [Concomitant]
     Indication: PROPHYLAXIS
     Dosage: 30 Milligram
     Route: 048
     Dates: start: 20120430
  16. ALENDRONIC ACID [Concomitant]
     Indication: OSTEOPOROSIS PROPHYLAXIS
     Route: 048
     Dates: start: 20120430
  17. ASPIRINE [Concomitant]
     Indication: THROMBOSIS PROPHYLAXIS
     Dosage: 75 Milligram
     Route: 048
     Dates: start: 20120430
  18. LANTUS [Concomitant]
     Indication: DIABETES
     Dosage: 26 units in am and 28 units in pm
     Route: 058
  19. NOVORAPID [Concomitant]
     Indication: DIABETES
     Route: 058
  20. G-CSF [Concomitant]
     Indication: DRUG USE FOR UNKNOWN INDICATION
     Route: 065

REACTIONS (6)
  - Cellulitis [Recovered/Resolved with Sequelae]
  - Dyspnoea [Not Recovered/Not Resolved]
  - Circulatory collapse [Recovered/Resolved with Sequelae]
  - Localised oedema [Not Recovered/Not Resolved]
  - Muscular weakness [Not Recovered/Not Resolved]
  - Hypotension [Recovered/Resolved with Sequelae]
